FAERS Safety Report 7417716-5 (Version None)
Quarter: 2011Q2

REPORT INFORMATION
  Report Type: 
  Country: None (occurrence: None)
  Receive Date: 20110415
  Receipt Date: 20110411
  Transmission Date: 20111010
  Serious: Yes (Life-Threatening, Other)
  Sender: FDA-Public Use
  Company Number: PHHY2011US22074

PATIENT
  Sex: Female

DRUGS (5)
  1. VIVELLE-DOT [Suspect]
     Dosage: 0.0375, TWICE PER WEEK
     Route: 062
     Dates: end: 20100601
  2. VICODIN [Suspect]
  3. FLEXERIL [Suspect]
  4. LEXAPRO [Concomitant]
  5. ESCITALOPRAM [Suspect]

REACTIONS (12)
  - SCAR [None]
  - SUICIDAL BEHAVIOUR [None]
  - VISUAL IMPAIRMENT [None]
  - INSOMNIA [None]
  - DIZZINESS [None]
  - HEAD INJURY [None]
  - PRECANCEROUS CELLS PRESENT [None]
  - DRUG DEPENDENCE [None]
  - BALANCE DISORDER [None]
  - HOT FLUSH [None]
  - HYPERHIDROSIS [None]
  - COLD SWEAT [None]
